FAERS Safety Report 5862075-2 (Version None)
Quarter: 2008Q3

REPORT INFORMATION
  Report Type: 
  Country: None (occurrence: None)
  Receive Date: 20080827
  Receipt Date: 20080827
  Transmission Date: 20090109
  Serious: Yes (Life-Threatening, Other)
  Sender: FDA-Public Use
  Company Number: None

PATIENT
  Sex: Female
  Weight: 57.1532 kg

DRUGS (1)
  1. LOPRESSOR [Suspect]
     Indication: TACHYCARDIA
     Dosage: 1/2 - 1 TWICE MORN EVENING ORAL
     Route: 048
     Dates: start: 20080609

REACTIONS (12)
  - ANOREXIA [None]
  - ANXIETY [None]
  - ASTHENIA [None]
  - CARDIAC DISORDER [None]
  - CONFUSIONAL STATE [None]
  - EXTRASYSTOLES [None]
  - HEADACHE [None]
  - INSOMNIA [None]
  - MUSCLE TIGHTNESS [None]
  - THINKING ABNORMAL [None]
  - TREMOR [None]
  - VENTRICULAR ARRHYTHMIA [None]
